FAERS Safety Report 15917149 (Version 1)
Quarter: 2019Q1

REPORT INFORMATION
  Report Type: Other
  Country: IT (occurrence: IT)
  Receive Date: 20190205
  Receipt Date: 20190205
  Transmission Date: 20190417
  Serious: Yes (Hospitalization)
  Sender: FDA-Public Use
  Company Number: IT-ACCORD-105523

PATIENT
  Age: 83 Year
  Sex: Female

DRUGS (5)
  1. ACETYLSALICYLIC ACID [Concomitant]
     Active Substance: ASPIRIN
  2. DONEPEZIL/DONEPEZIL HYDROCHLORIDE [Suspect]
     Active Substance: DONEPEZIL HYDROCHLORIDE
     Indication: DEMENTIA ALZHEIMER^S TYPE
     Route: 048
     Dates: start: 20170101, end: 20171113
  3. CITALOPRAM [Concomitant]
     Active Substance: CITALOPRAM HYDROBROMIDE
  4. LANSOX [Concomitant]
     Active Substance: LANSOPRAZOLE
  5. APROVEL [Concomitant]
     Active Substance: IRBESARTAN

REACTIONS (4)
  - Wound [None]
  - Fall [Unknown]
  - Dizziness [Unknown]
  - Confusional state [None]

NARRATIVE: CASE EVENT DATE: 20171113
